FAERS Safety Report 10700256 (Version 1)
Quarter: 2015Q1

REPORT INFORMATION
  Report Type: Spontaneous
  Country: US (occurrence: None)
  Receive Date: 20150107
  Receipt Date: 20150107
  Transmission Date: 20150721
  Serious: Yes (Congenital Anomaly)
  Sender: FDA-Public Use
  Company Number: 2693163

PATIENT
  Weight: 2 kg

DRUGS (3)
  1. ADRIAMYCIN [Suspect]
     Active Substance: DOXORUBICIN HYDROCHLORIDE
     Route: 064
  2. PACLITAXEL. [Suspect]
     Active Substance: PACLITAXEL
     Route: 064
  3. CYCLOPHOSPHAMIDE. [Suspect]
     Active Substance: CYCLOPHOSPHAMIDE
     Route: 064

REACTIONS (7)
  - Apnoea neonatal [None]
  - Maternal drugs affecting foetus [None]
  - Gastrooesophageal reflux disease [None]
  - Apnoea [None]
  - Selective IgA immunodeficiency [None]
  - Maternal exposure timing unspecified [None]
  - Acute respiratory distress syndrome [None]
